FAERS Safety Report 14151276 (Version 1)
Quarter: 2017Q4

REPORT INFORMATION
  Report Type: Spontaneous
  Country: US (occurrence: US)
  Receive Date: 20171102
  Receipt Date: 20171102
  Transmission Date: 20180321
  Serious: Yes (Other)
  Sender: FDA-Public Use
  Company Number: US-TORRENT-00003526

PATIENT
  Age: 11 Year
  Sex: Male

DRUGS (2)
  1. RISPERIDONE. [Suspect]
     Active Substance: RISPERIDONE
  2. GUANFACINE. [Suspect]
     Active Substance: GUANFACINE

REACTIONS (1)
  - Immune thrombocytopenic purpura [Recovered/Resolved]
